FAERS Safety Report 17920496 (Version 1)
Quarter: 2020Q2

REPORT INFORMATION
  Report Type: Spontaneous
  Country: US (occurrence: US)
  Receive Date: 20200621
  Receipt Date: 20200621
  Transmission Date: 20200714
  Serious: No
  Sender: FDA-Public Use
  Company Number: US-AKRON, INC.-2086316

PATIENT
  Sex: Female

DRUGS (2)
  1. ZIOPTAN [Suspect]
     Active Substance: TAFLUPROST
     Route: 047
     Dates: start: 202002
  2. COSOPT PF [Suspect]
     Active Substance: DORZOLAMIDE HYDROCHLORIDE\TIMOLOL MALEATE
     Route: 047
     Dates: start: 202002

REACTIONS (5)
  - Dry eye [Recovered/Resolved]
  - Skin burning sensation [Recovered/Resolved]
  - Eye irritation [Recovered/Resolved]
  - Dry skin [Recovered/Resolved]
  - Ocular hyperaemia [Recovered/Resolved]
